FAERS Safety Report 5682433-9 (Version None)
Quarter: 2008Q1

REPORT INFORMATION
  Report Type: 
  Country: None (occurrence: None)
  Receive Date: 20080327
  Receipt Date: 20080320
  Transmission Date: 20080703
  Serious: Yes (Other)
  Sender: FDA-Public Use
  Company Number: US-ASTRAZENECA-2006UW20961

PATIENT
  Age: 50 Year
  Sex: Female
  Weight: 108.6 kg

DRUGS (6)
  1. SEROQUEL [Suspect]
     Indication: DEPRESSION
     Route: 048
     Dates: start: 20030101, end: 20060101
  2. SEROQUEL [Suspect]
     Indication: BIPOLAR DISORDER
     Route: 048
     Dates: start: 20030101, end: 20060101
  3. ABILIFY [Concomitant]
     Dates: start: 20060101
  4. HALDOL [Concomitant]
     Dates: start: 20060101
  5. LAMICTAL [Concomitant]
  6. MIRTAZAPINE [Concomitant]

REACTIONS (3)
  - DIABETES MELLITUS [None]
  - NEUROPATHY PERIPHERAL [None]
  - WEIGHT INCREASED [None]
